FAERS Safety Report 8863283 (Version 1)
Quarter: 2012Q4

REPORT INFORMATION
  Report Type: 
  Country: US (occurrence: US)
  Receive Date: 20121025
  Receipt Date: 20121025
  Transmission Date: 20130627
  Serious: Yes (Other)
  Sender: FDA-Public Use
  Company Number: US-ROCHE-1137169

PATIENT
  Age: 70 Year
  Sex: Male
  Weight: 152 kg

DRUGS (3)
  1. RITUXAN [Suspect]
     Indication: CHRONIC LYMPHOCYTIC LEUKAEMIA
     Route: 050
  2. PROCRIT [Concomitant]
  3. TYLENOL [Concomitant]
     Route: 048

REACTIONS (8)
  - Fatigue [Unknown]
  - Pyrexia [Unknown]
  - Haemorrhage [Unknown]
  - White blood cell count increased [Unknown]
  - Contusion [Unknown]
  - Abdominal pain [Unknown]
  - Musculoskeletal pain [Unknown]
  - Lymphadenopathy [Unknown]
